FAERS Safety Report 5503006-4 (Version None)
Quarter: 2007Q4

REPORT INFORMATION
  Report Type: 
  Country: None (occurrence: None)
  Receive Date: 20071029
  Receipt Date: 20071029
  Transmission Date: 20080405
  Serious: No
  Sender: FDA-Public Use
  Company Number: None

PATIENT
  Age: 40 Year
  Sex: Male
  Weight: 81.6475 kg

DRUGS (1)
  1. VALTREX [Suspect]
     Indication: ORAL HERPES
     Dosage: 1 TABLET  1 PER DAY  PO
     Route: 048
     Dates: start: 20071018, end: 20071020

REACTIONS (8)
  - BLOOD PRESSURE INCREASED [None]
  - JOINT SWELLING [None]
  - NO THERAPEUTIC RESPONSE [None]
  - PRURITUS [None]
  - RASH ERYTHEMATOUS [None]
  - RASH PAPULAR [None]
  - URTICARIA [None]
  - WHITE BLOOD CELL COUNT INCREASED [None]
